FAERS Safety Report 9826853 (Version 1)
Quarter: 2014Q1

REPORT INFORMATION
  Report Type: Spontaneous
  Country: US (occurrence: US)
  Receive Date: 20140117
  Receipt Date: 20140117
  Transmission Date: 20141002
  Serious: No
  Sender: FDA-Public Use
  Company Number: US-GLAXOSMITHKLINE-A1007125A

PATIENT
  Age: 49 Year
  Sex: Male

DRUGS (12)
  1. PROMACTA [Suspect]
     Indication: PLATELET COUNT DECREASED
     Dosage: 100MG PER DAY
     Route: 048
     Dates: start: 201211
  2. CHANTIX [Concomitant]
  3. MORPHINE [Concomitant]
  4. HYDROCODONE [Concomitant]
  5. GABAPENTIN [Concomitant]
  6. TRAZODONE [Concomitant]
  7. PAROXETINE [Concomitant]
  8. RANITIDINE [Concomitant]
  9. SOMA [Concomitant]
  10. RIBAVIRIN [Concomitant]
  11. PEGINTERFERON (NOS) [Concomitant]
  12. VICTRELIS [Concomitant]

REACTIONS (2)
  - Nausea [Unknown]
  - Vomiting [Unknown]
